FAERS Safety Report 19243812 (Version 2)
Quarter: 2021Q2

REPORT INFORMATION
  Report Type: Report from Study
  Country: US (occurrence: US)
  Receive Date: 20210511
  Receipt Date: 20210603
  Transmission Date: 20210717
  Serious: Yes (Hospitalization)
  Sender: FDA-Public Use
  Company Number: US-PFIZER INC-2021385991

PATIENT
  Age: 86 Year
  Sex: Female

DRUGS (1)
  1. IBRANCE [Suspect]
     Active Substance: PALBOCICLIB
     Indication: BREAST CANCER FEMALE
     Dosage: 125 MG, CYCLIC (DAILY, 1?21 OF 28 CYCLE)
     Route: 048
     Dates: start: 20210329, end: 202104

REACTIONS (11)
  - Haemorrhage [Recovered/Resolved]
  - Wheezing [Unknown]
  - Wound [Unknown]
  - Condition aggravated [Unknown]
  - Asthenia [Unknown]
  - Nausea [Unknown]
  - Thrombosis [Unknown]
  - Erythema [Unknown]
  - Epistaxis [Unknown]
  - Dyspnoea [Unknown]
  - Decreased appetite [Unknown]

NARRATIVE: CASE EVENT DATE: 202104
